FAERS Safety Report 16598391 (Version 3)
Quarter: 2020Q2

REPORT INFORMATION
  Report Type: Spontaneous
  Country: US (occurrence: US)
  Receive Date: 20190719
  Receipt Date: 20200512
  Transmission Date: 20200713
  Serious: No
  Sender: FDA-Public Use
  Company Number: US-TEVA-2019-US-1079637

PATIENT
  Sex: Male

DRUGS (1)
  1. WARFARIN SODIUM. [Suspect]
     Active Substance: WARFARIN SODIUM
     Indication: CARDIAC VALVE DISEASE
     Dosage: DOSE WAS INCREASED FROM 27 MG PER WEEK TO 30 MG PER WEEK?DOSE WAS INCREASED FROM 30 MG PER WEEK TO 3
     Route: 065
     Dates: start: 1996

REACTIONS (1)
  - International normalised ratio decreased [Recovered/Resolved]
